FAERS Safety Report 8766350 (Version 3)
Quarter: 2014Q3

REPORT INFORMATION
  Report Type: Spontaneous
  Country: US (occurrence: US)
  Receive Date: 20120904
  Receipt Date: 20140804
  Transmission Date: 20150326
  Serious: Yes (Hospitalization, Other)
  Sender: FDA-Public Use
  Company Number: US-009507513-2010SP053353

PATIENT
  Sex: Female
  Weight: 81.65 kg

DRUGS (3)
  1. NUVARING [Suspect]
     Active Substance: ETHINYL ESTRADIOL\ETONOGESTREL
     Dosage: 1 DF, QM
     Route: 067
     Dates: start: 20070116, end: 20070221
  2. METICORTEN [Concomitant]
     Active Substance: PREDNISONE
     Indication: ASTHMA
     Dosage: UNK UNK, QD
  3. NUVARING [Suspect]
     Active Substance: ETHINYL ESTRADIOL\ETONOGESTREL
     Indication: CONTRACEPTION
     Route: 067
     Dates: start: 200412, end: 200504

REACTIONS (5)
  - Pulmonary embolism [Recovered/Resolved]
  - Thyroid neoplasm [Unknown]
  - Dysmenorrhoea [Recovering/Resolving]
  - Antiphospholipid antibodies positive [Unknown]
  - Urticaria [Unknown]

NARRATIVE: CASE EVENT DATE: 20070221
